FAERS Safety Report 4986888-4 (Version None)
Quarter: 2006Q2

REPORT INFORMATION
  Report Type: 
  Country: None (occurrence: None)
  Receive Date: 20060501
  Receipt Date: 20060419
  Transmission Date: 20061013
  Serious: Yes (Other)
  Sender: FDA-Public Use
  Company Number: US-JNJFOC-20060404327

PATIENT
  Sex: Male

DRUGS (2)
  1. REMICADE [Suspect]
     Indication: CROHN'S DISEASE
     Dosage: FOR A COUPLE OF MONTHS
     Route: 042
  2. BLOOD PRESSURE MEDICATION [Concomitant]

REACTIONS (1)
  - BLINDNESS TRANSIENT [None]
